FAERS Safety Report 9355207 (Version 1)
Quarter: 2013Q2

REPORT INFORMATION
  Report Type: Spontaneous
  Country: US (occurrence: None)
  Receive Date: 20130618
  Receipt Date: 20130618
  Transmission Date: 20140414
  Serious: Yes (Life-Threatening)
  Sender: FDA-Public Use
  Company Number: None

PATIENT
  Age: 55 Year
  Sex: Female
  Weight: 59.88 kg

DRUGS (13)
  1. TOPIRAMATE [Suspect]
     Indication: MIGRAINE
     Dosage: 1 PILL/DAY WK 1.  2 PILLS/DAY WK 2.  3 PILLS/DAY WK 3, THEN 4/DAY  1 IN A.M. AND 1 IN P.M.
     Route: 048
     Dates: start: 20130328, end: 20130411
  2. TRAZODONE HCL [Concomitant]
  3. FLUOXETINE HCL [Concomitant]
  4. BUPROPRION HCL [Concomitant]
  5. LAMOTRIGINE [Concomitant]
  6. IMITEX NASAL [Concomitant]
  7. FIORINAL/CODEINE #3 [Concomitant]
  8. MULTI-VITAMIN [Concomitant]
  9. FISH OIL [Concomitant]
  10. VITAMIN E [Concomitant]
  11. MIRALAX [Concomitant]
  12. FIBER CAPSULES [Concomitant]
  13. RED YEAST RICE [Concomitant]

REACTIONS (1)
  - Depression [None]
